FAERS Safety Report 19011434 (Version 1)
Quarter: 2021Q1

REPORT INFORMATION
  Report Type: Spontaneous
  Country: US (occurrence: US)
  Receive Date: 20210315
  Receipt Date: 20210315
  Transmission Date: 20210420
  Serious: No
  Sender: FDA-Public Use
  Company Number: US-PERRIGO-20US004546

PATIENT
  Sex: Male

DRUGS (2)
  1. ATORVASTATIN [Concomitant]
     Active Substance: ATORVASTATIN
     Indication: BLOOD CHOLESTEROL INCREASED
     Dosage: UNKNOWN, UNKNOWN
     Route: 048
  2. PODOFILOX. [Suspect]
     Active Substance: PODOFILOX
     Indication: SKIN PAPILLOMA
     Dosage: UNKNOWN, BID FOR 3 DAYS
     Route: 061
     Dates: start: 202003

REACTIONS (4)
  - Off label use [Not Recovered/Not Resolved]
  - Application site paraesthesia [Not Recovered/Not Resolved]
  - Underdose [Recovered/Resolved]
  - Drug ineffective [Recovered/Resolved]

NARRATIVE: CASE EVENT DATE: 202003
